FAERS Safety Report 13688728 (Version 1)
Quarter: 2017Q2

REPORT INFORMATION
  Report Type: Spontaneous
  Country: US (occurrence: US)
  Receive Date: 20170623
  Receipt Date: 20170623
  Transmission Date: 20170830
  Serious: Yes (Disabling)
  Sender: FDA-Public Use
  Company Number: None

PATIENT
  Age: 54 Year
  Sex: Female
  Weight: 70.65 kg

DRUGS (4)
  1. ASPIRIN. [Concomitant]
     Active Substance: ASPIRIN
  2. HCTZ [Concomitant]
     Active Substance: HYDROCHLOROTHIAZIDE
  3. ALPRAZOLAM. [Suspect]
     Active Substance: ALPRAZOLAM
     Indication: ANXIETY
     Dosage: FREQUENCY: BID, 2XDAY, 3XDAY
     Route: 048
     Dates: start: 20120227, end: 20150901
  4. MAGNESIUM [Concomitant]
     Active Substance: MAGNESIUM

REACTIONS (90)
  - Hyperhidrosis [None]
  - Crying [None]
  - Muscle twitching [None]
  - Eye pain [None]
  - Migraine [None]
  - Skin burning sensation [None]
  - Depersonalisation/derealisation disorder [None]
  - Feeling cold [None]
  - Anhedonia [None]
  - Phobia [None]
  - Scratch [None]
  - Panic attack [None]
  - Decreased activity [None]
  - Nausea [None]
  - Head discomfort [None]
  - Dyspnoea [None]
  - Insomnia [None]
  - Gastrointestinal disorder [None]
  - Hiccups [None]
  - Cough [None]
  - Lacrimation increased [None]
  - Procedural pain [None]
  - Weight increased [None]
  - Hypersensitivity [None]
  - Mood swings [None]
  - Irritability [None]
  - Drug use disorder [None]
  - Bedridden [None]
  - Dry mouth [None]
  - Hypertension [None]
  - Suicidal ideation [None]
  - Intrusive thoughts [None]
  - Obsessive-compulsive disorder [None]
  - Post-traumatic stress disorder [None]
  - Dysgraphia [None]
  - Cognitive disorder [None]
  - Nightmare [None]
  - Hallucinations, mixed [None]
  - Thirst [None]
  - Palpitations [None]
  - Neuralgia [None]
  - Spinal pain [None]
  - Heart rate decreased [None]
  - Influenza [None]
  - Vertigo [None]
  - Flushing [None]
  - Hyperacusis [None]
  - Adnexa uteri pain [None]
  - Hypoaesthesia [None]
  - Depression [None]
  - Anxiety [None]
  - Pain [None]
  - Hypotension [None]
  - Paranoia [None]
  - Antisocial behaviour [None]
  - Apathy [None]
  - Poor personal hygiene [None]
  - Vein disorder [None]
  - Blepharospasm [None]
  - Hunger [None]
  - Dysphemia [None]
  - Tremor [None]
  - Bladder pain [None]
  - Disturbance in attention [None]
  - Feeling hot [None]
  - Diplopia [None]
  - Impaired self-care [None]
  - Tachycardia [None]
  - Decreased appetite [None]
  - Eructation [None]
  - Dysphonia [None]
  - Pupil fixed [None]
  - Dysmenorrhoea [None]
  - Muscle spasms [None]
  - Anger [None]
  - Visual impairment [None]
  - Gait disturbance [None]
  - Scab [None]
  - Fatigue [None]
  - Derealisation [None]
  - Tinnitus [None]
  - Brain injury [None]
  - Somnolence [None]
  - Memory impairment [None]
  - Ocular hyperaemia [None]
  - Photophobia [None]
  - Cardiac flutter [None]
  - Pain in extremity [None]
  - Urticaria [None]
  - Vision blurred [None]

NARRATIVE: CASE EVENT DATE: 20140303
